FAERS Safety Report 9034624 (Version 3)
Quarter: 2013Q2

REPORT INFORMATION
  Report Type: Spontaneous
  Country: DK (occurrence: None)
  Receive Date: 20130118
  Receipt Date: 20130531
  Transmission Date: 20140414
  Serious: Yes (Other)
  Sender: FDA-Public Use
  Company Number: AUR-APL-2012-04963

PATIENT
  Age: 28 Year
  Sex: Female
  Weight: 59 kg

DRUGS (8)
  1. LAMOTRIGINE [Suspect]
     Indication: DEPRESSION
     Dates: start: 20110512
  2. EFEXOR [Suspect]
     Indication: DEPRESSION
     Dosage: 1 DAY
     Dates: start: 20100622
  3. METHOTREXATE SODIUM [Suspect]
     Indication: ARTHRITIS
     Dosage: 1 WK)
     Dates: start: 20110517
  4. AGOMELATINE [Suspect]
     Indication: DEPRESSION
     Dates: start: 20110324
  5. AGOMELATINE [Suspect]
     Dates: start: 20110324
  6. FOLIC ACID [Concomitant]
  7. ETHINYL ESTRADIOL [Concomitant]
  8. IBUPROFEN [Concomitant]

REACTIONS (14)
  - Hyperhidrosis [None]
  - Anorgasmia [None]
  - Loss of libido [None]
  - Tic [None]
  - Agitation [None]
  - Tremor [None]
  - Tremor [None]
  - Amnesia [None]
  - Dyskinesia [None]
  - Disturbance in attention [None]
  - Nightmare [None]
  - Hot flush [None]
  - Anxiety [None]
  - Insomnia [None]
